FAERS Safety Report 26131069 (Version 1)
Quarter: 2025Q4

REPORT INFORMATION
  Report Type: Spontaneous
  Country: US (occurrence: None)
  Receive Date: 20251207
  Receipt Date: 20251207
  Transmission Date: 20260118
  Serious: Yes (unspecified)
  Sender: FDA-CTU
  Company Number: None

PATIENT
  Age: 75 Year
  Sex: Male
  Weight: 80.3 kg

DRUGS (1)
  1. FUROSCIX [Suspect]
     Active Substance: FUROSEMIDE
     Indication: Cardiac failure congestive
     Dosage: SUBCUTANEOUS
     Route: 058
     Dates: start: 20251207, end: 20251207

REACTIONS (2)
  - Arterial injury [None]
  - Haemorrhage [None]

NARRATIVE: CASE EVENT DATE: 20251207
